FAERS Safety Report 21172569 (Version 1)
Quarter: 2022Q3

REPORT INFORMATION
  Report Type: Spontaneous
  Country: US (occurrence: None)
  Receive Date: 20220803
  Receipt Date: 20220803
  Transmission Date: 20221026
  Serious: Yes (Other)
  Sender: FDA-Public Use
  Company Number: None

PATIENT
  Age: 63 Year
  Sex: Female
  Weight: 71.21 kg

DRUGS (2)
  1. DULOXETINE [Suspect]
     Active Substance: DULOXETINE
     Indication: Post concussion syndrome
     Dosage: FREQUENCY : DAILY;?
     Route: 048
     Dates: start: 2022, end: 20220422
  2. DULOXETINE [Suspect]
     Active Substance: DULOXETINE
     Indication: Depression

REACTIONS (4)
  - Vertigo [None]
  - Nausea [None]
  - Disorientation [None]
  - Product substitution issue [None]

NARRATIVE: CASE EVENT DATE: 20220419
